FAERS Safety Report 5846455-7 (Version None)
Quarter: 2008Q3

REPORT INFORMATION
  Report Type: 
  Country: None (occurrence: None)
  Receive Date: 20080815
  Receipt Date: 20080806
  Transmission Date: 20090109
  Serious: Yes (Other)
  Sender: FDA-Public Use
  Company Number: US-NOVOPROD-277228

PATIENT
  Age: 21 Year
  Sex: Male
  Weight: 70 kg

DRUGS (3)
  1. NOVOSEVEN [Suspect]
     Indication: POST PROCEDURAL HAEMORRHAGE
     Dosage: 48 MG, 8 A.M.
     Route: 042
     Dates: start: 20080709, end: 20080709
  2. NOVOSEVEN [Suspect]
     Dosage: 48 UNK, 10 A.M.
     Dates: start: 20080709, end: 20080709
  3. NOVOSEVEN [Suspect]
     Dosage: 48 MG, 12 NOON
     Route: 042
     Dates: start: 20080709, end: 20080709

REACTIONS (3)
  - DISSEMINATED INTRAVASCULAR COAGULATION [None]
  - DRUG DISPENSING ERROR [None]
  - DRUG INEFFECTIVE [None]
